FAERS Safety Report 11909107 (Version 3)
Quarter: 2016Q2

REPORT INFORMATION
  Report Type: Spontaneous
  Country: CA (occurrence: CA)
  Receive Date: 20160112
  Receipt Date: 20160503
  Transmission Date: 20160815
  Serious: Yes (Hospitalization, Other)
  Sender: FDA-Public Use
  Company Number: CA-ROCHE-1691687

PATIENT
  Age: 49 Year
  Sex: Female

DRUGS (7)
  1. REACTINE (CANADA) [Concomitant]
     Active Substance: CETIRIZINE HYDROCHLORIDE
  2. SALBUTAMOL [Concomitant]
     Active Substance: ALBUTEROL
  3. PREDNISONE. [Concomitant]
     Active Substance: PREDNISONE
  4. XOLAIR [Suspect]
     Active Substance: OMALIZUMAB
     Indication: ASTHMA
     Route: 058
     Dates: start: 20150429
  5. AVAMYS [Concomitant]
     Active Substance: FLUTICASONE FUROATE
  6. SYMBICORT [Suspect]
     Active Substance: BUDESONIDE\FORMOTEROL FUMARATE DIHYDRATE
     Indication: PRODUCT USED FOR UNKNOWN INDICATION
     Route: 065
     Dates: start: 20150429
  7. ALVESCO [Concomitant]
     Active Substance: CICLESONIDE

REACTIONS (9)
  - Dizziness [Unknown]
  - Nasopharyngitis [Unknown]
  - Asthma [Unknown]
  - Forced expiratory volume decreased [Unknown]
  - Aphonia [Unknown]
  - Arthralgia [Unknown]
  - Arthritis [Unknown]
  - Injection site haematoma [Unknown]
  - Middle insomnia [Unknown]

NARRATIVE: CASE EVENT DATE: 20150429
